FAERS Safety Report 8164571-4 (Version None)
Quarter: 2012Q1

REPORT INFORMATION
  Report Type: 
  Country: None (occurrence: None)
  Receive Date: 20120226
  Receipt Date: 20120215
  Transmission Date: 20120608
  Serious: Yes (Hospitalization, Other)
  Sender: FDA-Public Use
  Company Number: US-MYLANLABS-2012S1003782

PATIENT
  Sex: Male
  Weight: 116.12 kg

DRUGS (14)
  1. AMIODARONE HCL [Concomitant]
  2. COREG [Concomitant]
  3. NITROGLYCERIN [Concomitant]
     Route: 060
  4. ASPIRIN [Concomitant]
  5. COLACE [Concomitant]
  6. PROTONIX [Concomitant]
  7. BENICAR [Concomitant]
  8. ZOCOR [Concomitant]
  9. ALDACTONE [Concomitant]
  10. PLAVIX [Concomitant]
  11. ZETIA [Concomitant]
  12. DEMADEX [Concomitant]
  13. METFORMIN HCL [Concomitant]
  14. DIGOXIN [Suspect]
     Indication: PRODUCT USED FOR UNKNOWN INDICATION

REACTIONS (68)
  - ASCITES [None]
  - MITRAL VALVE INCOMPETENCE [None]
  - NEUROGENIC SHOCK [None]
  - ATRIAL FLUTTER [None]
  - BLOOD PRESSURE DECREASED [None]
  - CHEST PAIN [None]
  - CHOLELITHIASIS [None]
  - AORTIC VALVE INCOMPETENCE [None]
  - JAUNDICE [None]
  - ATRIAL TACHYCARDIA [None]
  - ELECTROCARDIOGRAM ST-T CHANGE [None]
  - ENZYME ABNORMALITY [None]
  - JUGULAR VEIN DISTENSION [None]
  - LIVEDO RETICULARIS [None]
  - PULMONARY ARTERIAL PRESSURE INCREASED [None]
  - ASTHENIA [None]
  - CORONARY ARTERY DISEASE [None]
  - HYPOTENSION [None]
  - INTRA-AORTIC BALLOON PLACEMENT [None]
  - BUNDLE BRANCH BLOCK LEFT [None]
  - CARDIAC MURMUR [None]
  - CHEST DISCOMFORT [None]
  - CHRONIC OBSTRUCTIVE PULMONARY DISEASE [None]
  - EJECTION FRACTION DECREASED [None]
  - ELECTROCARDIOGRAM ST SEGMENT DEPRESSION [None]
  - HEPATIC ENZYME ABNORMAL [None]
  - TACHYCARDIA [None]
  - CORONARY ARTERY BYPASS [None]
  - HEPATIC CIRRHOSIS [None]
  - MYOCARDIAL ISCHAEMIA [None]
  - RENAL FAILURE [None]
  - HYPOKALAEMIA [None]
  - HYPOPERFUSION [None]
  - SUPRAVENTRICULAR TACHYCARDIA [None]
  - SWAN GANZ CATHETER PLACEMENT [None]
  - TROPONIN I INCREASED [None]
  - NAUSEA [None]
  - VOMITING [None]
  - ANGINA PECTORIS [None]
  - CARDIAC FAILURE CONGESTIVE [None]
  - CHOLECYSTITIS [None]
  - TRICUSPID VALVE INCOMPETENCE [None]
  - BLOOD TEST ABNORMAL [None]
  - HEART RATE IRREGULAR [None]
  - UMBILICAL HERNIA [None]
  - DIARRHOEA [None]
  - ACUTE MYOCARDIAL INFARCTION [None]
  - ARRHYTHMIA SUPRAVENTRICULAR [None]
  - CARDIOGENIC SHOCK [None]
  - CATHETERISATION CARDIAC ABNORMAL [None]
  - CHOLECYSTECTOMY [None]
  - PULMONARY OEDEMA [None]
  - CARDIOMEGALY [None]
  - FEELING ABNORMAL [None]
  - ILL-DEFINED DISORDER [None]
  - OEDEMA PERIPHERAL [None]
  - OSTEOPENIA [None]
  - HYPOXIA [None]
  - BILE DUCT STONE [None]
  - DYSPNOEA EXERTIONAL [None]
  - HEART RATE INCREASED [None]
  - LEFT VENTRICULAR DYSFUNCTION [None]
  - DIZZINESS [None]
  - LABORATORY TEST ABNORMAL [None]
  - HIGH FREQUENCY ABLATION [None]
  - HYPERHIDROSIS [None]
  - VENTRICULAR HYPOKINESIA [None]
  - ABDOMINAL PAIN [None]
